FAERS Safety Report 17665868 (Version 1)
Quarter: 2020Q2

REPORT INFORMATION
  Report Type: Spontaneous
  Country: US (occurrence: US)
  Receive Date: 20200413
  Receipt Date: 20200413
  Transmission Date: 20200713
  Serious: No
  Sender: FDA-Public Use
  Company Number: None

PATIENT
  Age: 87 Year
  Sex: Female

DRUGS (1)
  1. PROLIA [Suspect]
     Active Substance: DENOSUMAB
     Dosage: ?          OTHER DOSE:ONE INJECTION(60MG);OTHER FREQUENCY:EVERY 6 MONTHS;OTHER ROUTE:INJECTION?
     Dates: start: 20180416, end: 20190731

REACTIONS (1)
  - Death [None]

NARRATIVE: CASE EVENT DATE: 20200413
